FAERS Safety Report 16721477 (Version 1)
Quarter: 2019Q3

REPORT INFORMATION
  Report Type: Spontaneous
  Country: US (occurrence: US)
  Receive Date: 20190820
  Receipt Date: 20190820
  Transmission Date: 20191005
  Serious: No
  Sender: FDA-Public Use
  Company Number: US-TEVA-2018-US-887728

PATIENT
  Age: 35 Year
  Sex: Female

DRUGS (18)
  1. AMPICILLIN [Suspect]
     Active Substance: AMPICILLIN
     Dosage: 2 G AT 12:40 ON DAY 2
     Route: 065
  2. SALINE [Suspect]
     Active Substance: SODIUM CHLORIDE
     Route: 065
  3. ASCORBIC ACID. [Suspect]
     Active Substance: ASCORBIC ACID
     Dosage: 1 G AT 12:00 ON DAY 4
     Route: 065
  4. SALINE [Suspect]
     Active Substance: SODIUM CHLORIDE
     Route: 065
  5. SALINE [Suspect]
     Active Substance: SODIUM CHLORIDE
     Route: 065
  6. SALINE [Suspect]
     Active Substance: SODIUM CHLORIDE
     Route: 065
  7. OXYTOCIN. [Suspect]
     Active Substance: OXYTOCIN
     Dosage: 10 UI AT 10:20, 17:47, AND 18:00 ON DAY 8
     Route: 065
  8. IRON [Suspect]
     Active Substance: IRON
     Route: 065
  9. NIFEDIPINE. [Suspect]
     Active Substance: NIFEDIPINE
     Dosage: 10MG GIVEN ON DAY 1 AT 19:50, 20:10, 20:30, DAY 2 04:00
     Route: 065
  10. SALINE [Suspect]
     Active Substance: SODIUM CHLORIDE
     Route: 065
  11. ACETAMINOPHEN. [Suspect]
     Active Substance: ACETAMINOPHEN
     Dosage: 500 MG AT 20:00 ON DAY 1; 500 MG AT 04:00; 500 MG AT 0:00, 6:00, 12:00, 18:00 ON DAY 4; 500 MG AT...
     Route: 065
  12. FOLIC-ACID/IRON [Suspect]
     Active Substance: FOLIC ACID\IRON
     Dosage: 1 TAB AT 10:00 AND 20:00 ON DAY 7
     Route: 065
  13. MISOPROSTOL. [Suspect]
     Active Substance: MISOPROSTOL
     Dosage: 25 MICROG GIVEN AT 11:30 ON DAY 5
     Route: 065
  14. ACETAMINOPHEN. [Suspect]
     Active Substance: ACETAMINOPHEN
     Dosage: 1 G AT 14:30, AND 1 G AT 20:00 ON DAY 2; 1 G AT 0:00, 04:00, AND 08:00 ON DAY 3
     Route: 065
  15. MAGNESIUM SULFATE. [Suspect]
     Active Substance: MAGNESIUM SULFATE
     Dosage: 1 AMPULE AT 18:00 ON DAY 1, 2 AMPULES AT 19:45 ON DAY 1, 1 AMPULE AT 20:30 ON DAY 1
     Route: 065
  16. ASCORBIC ACID. [Suspect]
     Active Substance: ASCORBIC ACID
     Dosage: 2G AT 20:00 ON DAY 2; 2 G AT 0:00, 8:00 AND 12:00 ON DAY 3;
     Route: 065
  17. FOLIC-ACID/IRON [Suspect]
     Active Substance: FOLIC ACID\IRON
     Dosage: (UNKNOWN DOSE) AT 12:00 AND 16:00 ON DAY 6;
     Route: 065
  18. IRON [Suspect]
     Active Substance: IRON
     Dosage: 1 TAB 16:00 ON DAY 2; 3 MICROG 04:00 ON DAY 3
     Route: 065

REACTIONS (1)
  - Maternal exposure during pregnancy [Recovered/Resolved]
